FAERS Safety Report 8545527-6 (Version None)
Quarter: 2012Q3

REPORT INFORMATION
  Report Type: 
  Country: None (occurrence: None)
  Receive Date: 20120727
  Receipt Date: 20111024
  Transmission Date: 20120928
  Serious: No
  Sender: FDA-Public Use
  Company Number: US-ASTRAZENECA-2011SE64359

PATIENT
  Age: 61 Year
  Sex: Female
  Weight: 74.8 kg

DRUGS (9)
  1. HYDROCLODINE [Concomitant]
     Indication: PAIN
  2. SERTRALINE HYDROCHLORIDE [Concomitant]
     Indication: DEPRESSION
  3. ZOLPIDEM TARTRATE [Concomitant]
     Indication: INSOMNIA
  4. GABAPENTIN [Concomitant]
     Indication: MUSCLE SPASMS
  5. ALPRAZOLAM [Concomitant]
     Indication: ANXIOLYTIC THERAPY
  6. SEROQUEL XR [Suspect]
     Indication: BIPOLAR DISORDER
     Route: 048
     Dates: start: 20080101
  7. SEROQUEL XR [Suspect]
     Indication: BIPOLAR I DISORDER
     Route: 048
     Dates: start: 20080101
  8. VITAMINE B12 SHOT [Concomitant]
     Indication: IMMUNE ENHANCEMENT THERAPY
  9. LOVASTATIN [Concomitant]
     Indication: BLOOD CHOLESTEROL ABNORMAL

REACTIONS (5)
  - IRRITABILITY [None]
  - DRUG DOSE OMISSION [None]
  - FATIGUE [None]
  - STRESS [None]
  - INSOMNIA [None]
